FAERS Safety Report 21229361 (Version 1)
Quarter: 2022Q3

REPORT INFORMATION
  Report Type: Spontaneous
  Country: ID (occurrence: None)
  Receive Date: 20220818
  Receipt Date: 20220818
  Transmission Date: 20221027
  Serious: Yes (Other)
  Sender: FDA-Public Use
  Company Number: 2022A288619

PATIENT
  Age: 74 Year
  Sex: Female

DRUGS (2)
  1. GEFITINIB [Suspect]
     Active Substance: GEFITINIB
     Route: 048
     Dates: start: 20200318
  2. OSIMERTINIB [Concomitant]
     Active Substance: OSIMERTINIB
     Route: 065
     Dates: start: 20200504

REACTIONS (2)
  - Metastases to central nervous system [Unknown]
  - Headache [Unknown]

NARRATIVE: CASE EVENT DATE: 20200407
